FAERS Safety Report 18238695 (Version 26)
Quarter: 2022Q1

REPORT INFORMATION
  Report Type: Report from Study
  Country: JP (occurrence: JP)
  Receive Date: 20200907
  Receipt Date: 20220308
  Transmission Date: 20220423
  Serious: Yes (Hospitalization, Other)
  Sender: FDA-Public Use
  Company Number: NVSJ2020JP005884

PATIENT
  Age: 1 Year
  Sex: Female
  Weight: 7.6 kg

DRUGS (11)
  1. ZOLGENSMA [Suspect]
     Active Substance: ONASEMNOGENE ABEPARVOVEC-XIOI
     Indication: Spinal muscular atrophy
     Dosage: 44 ML (1.1XE14VG/KG)
     Route: 042
     Dates: start: 20200609, end: 20200609
  2. PREDONINE [Concomitant]
     Active Substance: PREDNISOLONE
     Indication: Product used for unknown indication
     Dosage: 1 MG/KG
     Route: 048
     Dates: start: 20200608, end: 20200611
  3. PREDONINE [Concomitant]
     Active Substance: PREDNISOLONE
     Dosage: 1 MG/KG
     Route: 042
     Dates: start: 20200612, end: 20200615
  4. PREDONINE [Concomitant]
     Active Substance: PREDNISOLONE
     Dosage: 1 MG/KG
     Route: 048
     Dates: start: 20200616, end: 20200902
  5. PREDONINE [Concomitant]
     Active Substance: PREDNISOLONE
     Dosage: 0.75 MG/KG
     Route: 048
  6. PREDONINE [Concomitant]
     Active Substance: PREDNISOLONE
     Dosage: 0.5 MG/KG
     Route: 048
     Dates: start: 20200903
  7. PREDONINE [Concomitant]
     Active Substance: PREDNISOLONE
     Dosage: 0.25 MG/KG
     Route: 048
     Dates: start: 20200903
  8. PREDNISOLONE [Concomitant]
     Active Substance: PREDNISOLONE
     Indication: Product used for unknown indication
     Dosage: 1 MG/KG
     Route: 065
     Dates: start: 20200508, end: 20200930
  9. PREDNISOLONE [Concomitant]
     Active Substance: PREDNISOLONE
     Dosage: 1 MG/KG
     Route: 065
     Dates: start: 20200608, end: 20200901
  10. PREDNISOLONE [Concomitant]
     Active Substance: PREDNISOLONE
     Dosage: 0.5 MG/KG
     Route: 065
     Dates: start: 20200902, end: 20200915
  11. PREDNISOLONE [Concomitant]
     Active Substance: PREDNISOLONE
     Dosage: 0.25 MG/KG
     Route: 065
     Dates: start: 20200916, end: 20200930

REACTIONS (13)
  - Pneumonia respiratory syncytial viral [Recovered/Resolved]
  - Thrombocytopenia [Recovered/Resolved]
  - Hepatic function abnormal [Recovered/Resolved]
  - Aspartate aminotransferase increased [Recovered/Resolved]
  - Alanine aminotransferase increased [Recovered/Resolved]
  - Hepatic function abnormal [Recovered/Resolved]
  - Aspartate aminotransferase increased [Recovered/Resolved]
  - Alanine aminotransferase increased [Recovered/Resolved]
  - Asthenia [Recovered/Resolved]
  - Pyrexia [Recovered/Resolved]
  - Pyrexia [Recovered/Resolved]
  - Upper respiratory tract infection [Recovered/Resolved]
  - Vomiting [Unknown]

NARRATIVE: CASE EVENT DATE: 20200611
